FAERS Safety Report 10093398 (Version 1)
Quarter: 2014Q2

REPORT INFORMATION
  Report Type: Spontaneous
  Country: US (occurrence: US)
  Receive Date: 20140421
  Receipt Date: 20140421
  Transmission Date: 20141212
  Serious: No
  Sender: FDA-Public Use
  Company Number: US-SANOFI-AVENTIS-2013SA057128

PATIENT
  Age: 81 Year
  Sex: Male

DRUGS (4)
  1. ALLEGRA [Suspect]
     Indication: UPPER-AIRWAY COUGH SYNDROME
     Route: 048
  2. TOPROL XL [Concomitant]
  3. NORVASC [Concomitant]
  4. XANAX [Concomitant]

REACTIONS (1)
  - Drug ineffective [Unknown]
